FAERS Safety Report 6161950-1 (Version None)
Quarter: 2009Q2

REPORT INFORMATION
  Report Type: 
  Country: None (occurrence: None)
  Receive Date: 20090417
  Receipt Date: 20090417
  Transmission Date: 20091009
  Serious: No
  Sender: FDA-Public Use
  Company Number: None

PATIENT
  Age: 33 Year
  Sex: Male
  Weight: 79.3795 kg

DRUGS (1)
  1. TAMIFLU [Suspect]
     Indication: INFLUENZA
     Dosage: 75MG ONCE/DAY PO
     Route: 048
     Dates: start: 20090220, end: 20090220

REACTIONS (6)
  - AGGRESSION [None]
  - ANGER [None]
  - CONFUSIONAL STATE [None]
  - DISORIENTATION [None]
  - PANIC REACTION [None]
  - THINKING ABNORMAL [None]
